FAERS Safety Report 18730149 (Version 1)
Quarter: 2021Q1

REPORT INFORMATION
  Report Type: Spontaneous
  Country: JP (occurrence: JP)
  Receive Date: 20210112
  Receipt Date: 20210112
  Transmission Date: 20210419
  Serious: Yes (Hospitalization)
  Sender: FDA-Public Use
  Company Number: JP-ASTRAZENECA-2021A002784

PATIENT
  Sex: Male

DRUGS (9)
  1. EFIENT [Concomitant]
     Active Substance: PRASUGREL HYDROCHLORIDE
     Dosage: DOSE UNKNOWN
     Route: 048
  2. DEPAS [Concomitant]
     Dosage: DOSE UNKNOWN
     Route: 048
  3. CRESTOR [Concomitant]
     Active Substance: ROSUVASTATIN CALCIUM
     Dosage: DOSE UNKNOWN
     Route: 048
  4. ZETIA [Concomitant]
     Active Substance: EZETIMIBE
     Dosage: DOSE UNKNOWN
     Route: 048
  5. ROSUZET [Concomitant]
     Active Substance: EZETIMIBE\ROSUVASTATIN
     Dosage: DOSE UNKNOWN
     Route: 048
  6. ENALAPRIL [Concomitant]
     Active Substance: ENALAPRIL
     Dosage: DOSE UNKNOWN
     Route: 048
  7. CRESTOR [Suspect]
     Active Substance: ROSUVASTATIN CALCIUM
     Dosage: DOSE UNKNOWN
     Route: 048
     Dates: start: 201602
  8. BAYASPIRIN [Concomitant]
     Active Substance: ASPIRIN
     Dosage: DOSE UNKNOWN
     Route: 048
  9. PARIET [Concomitant]
     Active Substance: RABEPRAZOLE SODIUM
     Dosage: DOSE UNKNOWN
     Route: 048

REACTIONS (1)
  - Myocardial infarction [Unknown]
